FAERS Safety Report 7830022-X (Version None)
Quarter: 2011Q4

REPORT INFORMATION
  Report Type: 
  Country: None (occurrence: None)
  Receive Date: 20111021
  Receipt Date: 20111013
  Transmission Date: 20120403
  Serious: Yes (Hospitalization)
  Sender: FDA-Public Use
  Company Number: JP-AMGEN-JPNCT2011008918

PATIENT
  Age: 61 Year
  Sex: Female
  Weight: 76 kg

DRUGS (19)
  1. PANITUMUMAB [Suspect]
     Indication: COLORECTAL CANCER
     Dosage: 6 MG/KG, Q2WK
     Route: 041
     Dates: start: 20100713, end: 20101018
  2. MICARDIS [Concomitant]
     Dosage: UNK
     Route: 048
  3. BEZATOL  SR [Concomitant]
     Dosage: UNK
     Route: 048
  4. ATARAX [Concomitant]
     Dosage: UNK
     Route: 048
  5. OLOPATADINE HCL [Concomitant]
     Dosage: UNK
     Route: 048
  6. PROTECADIN [Concomitant]
     Dosage: UNK
     Route: 048
  7. CORTICOSTEROIDS [Concomitant]
     Indication: PROPHYLAXIS
     Dosage: UNK
     Route: 065
  8. PANITUMUMAB [Suspect]
     Dosage: 4.8 MG/KG, Q2WK
     Route: 041
     Dates: start: 20101115, end: 20101115
  9. FLUOROURACIL [Concomitant]
     Indication: COLORECTAL CANCER
     Dosage: 3000 MG, Q2WK
     Route: 041
     Dates: start: 20100713
  10. RESTAMIN [Concomitant]
     Dosage: UNK
     Route: 048
  11. FAMOTIDINE [Concomitant]
     Dosage: UNK
     Route: 042
  12. NEUROVITAN [Concomitant]
     Dosage: UNK
     Route: 048
  13. IRINOTECAN HCL [Concomitant]
     Indication: COLORECTAL CANCER
     Dosage: 250 MG, Q2WK
     Route: 041
     Dates: start: 20100713
  14. ANTIHISTAMINES [Concomitant]
     Indication: PROPHYLAXIS
     Dosage: UNK
     Route: 065
  15. DECADRON [Concomitant]
     Dosage: UNK
     Route: 042
  16. ERBITUX [Concomitant]
     Indication: COLORECTAL CANCER
     Dosage: UNK
     Route: 041
     Dates: start: 20091101, end: 20100601
  17. LEVOLEUCOVORIN CALCIUM [Concomitant]
     Indication: COLORECTAL CANCER
     Dosage: 300 MG, Q2WK
     Route: 041
     Dates: start: 20100713
  18. URSO 250 [Concomitant]
     Dosage: UNK
     Route: 048
  19. PURSENNID [Concomitant]
     Dosage: UNK
     Route: 048

REACTIONS (7)
  - ANAESTHESIA DOLOROSA [None]
  - HYPOKALAEMIA [None]
  - EYE DISCHARGE [None]
  - INFUSION RELATED REACTION [None]
  - HYPOCALCAEMIA [None]
  - DIZZINESS [None]
  - PARONYCHIA [None]
